FAERS Safety Report 8077086-9 (Version None)
Quarter: 2012Q1

REPORT INFORMATION
  Report Type: 
  Country: None (occurrence: None)
  Receive Date: 20120127
  Receipt Date: 20120113
  Transmission Date: 20120608
  Serious: Yes (Other)
  Sender: FDA-Public Use
  Company Number: GB-SANOFI-AVENTIS-A01200801166

PATIENT
  Age: 67 Year
  Sex: Female

DRUGS (9)
  1. BISOPROLOL FUMARATE [Interacting]
     Route: 065
  2. ASPIRIN [Interacting]
     Route: 065
  3. PLAVIX [Interacting]
     Dosage: UNIT DOSE: 75 MG
     Route: 065
  4. SIMVASTATIN [Interacting]
     Route: 065
  5. ASPIRIN [Interacting]
     Route: 065
  6. PLAVIX [Suspect]
     Dosage: UNIT DOSE: 75 MG
     Route: 048
  7. PLAVIX [Interacting]
     Dosage: UNIT DOSE: 75 MG
     Route: 048
  8. ALTACE [Interacting]
     Route: 065
  9. PREGABALIN [Interacting]
     Indication: TRIGEMINAL NEURALGIA
     Route: 065
     Dates: start: 20060101

REACTIONS (3)
  - DRUG INTERACTION [None]
  - DRUG INEFFECTIVE [None]
  - MYOCARDIAL INFARCTION [None]
